FAERS Safety Report 5034415-8 (Version None)
Quarter: 2006Q2

REPORT INFORMATION
  Report Type: 
  Country: None (occurrence: None)
  Receive Date: 20060518
  Receipt Date: 20050812
  Transmission Date: 20061013
  Serious: Yes (Other)
  Sender: FDA-Public Use
  Company Number: 2005115617

PATIENT
  Sex: Female

DRUGS (1)
  1. DEPO-PROVERA [Suspect]
     Indication: CONTRACEPTION
     Dosage: (INTERVAL: EVERY 3 MONTHS), INTRAMUSCULAR
     Route: 030
     Dates: start: 19960101, end: 19960101

REACTIONS (1)
  - BONE DENSITY DECREASED [None]
